FAERS Safety Report 11696043 (Version 1)
Quarter: 2015Q4

REPORT INFORMATION
  Report Type: Spontaneous
  Country: US (occurrence: US)
  Receive Date: 20151104
  Receipt Date: 20151104
  Transmission Date: 20160304
  Serious: Yes (Hospitalization, Disabling)
  Sender: FDA-Public Use
  Company Number: US-WATSON-2015-17592

PATIENT
  Age: 44 Year
  Sex: Male
  Weight: 91 kg

DRUGS (11)
  1. ESCITALOPRAM [Suspect]
     Active Substance: ESCITALOPRAM OXALATE
     Indication: PRODUCT USED FOR UNKNOWN INDICATION
     Dosage: UNK
     Route: 065
  2. OXYCONTIN [Concomitant]
     Active Substance: OXYCODONE HYDROCHLORIDE
  3. VENTOLIN [Suspect]
     Active Substance: ALBUTEROL SULFATE
     Indication: ASTHMA
     Dosage: 2-6 PUFFS AS NEEDED
     Route: 055
     Dates: start: 198110
  4. DUEXIS [Concomitant]
     Active Substance: FAMOTIDINE\IBUPROFEN
  5. ADVAIR HFA [Suspect]
     Active Substance: FLUTICASONE PROPIONATE\SALMETEROL XINAFOATE
     Indication: ASTHMA
     Dosage: 1 PUFF TWICE DAILY
     Route: 055
     Dates: start: 2001, end: 2013
  6. ANDRODERM [Suspect]
     Active Substance: TESTOSTERONE
     Indication: ANDROGEN REPLACEMENT THERAPY
     Dosage: 1 DF, DAILY
     Route: 062
     Dates: start: 200912
  7. OXYCODONE [Concomitant]
     Active Substance: OXYCODONE
  8. VALIUM [Concomitant]
     Active Substance: DIAZEPAM
  9. BIOTENE ORAL BALANCE [Suspect]
     Active Substance: XYLITOL
     Indication: DRY MOUTH
     Dosage: UNK
     Route: 065
     Dates: start: 2014
  10. GABAPENTIN. [Concomitant]
     Active Substance: GABAPENTIN
  11. SINGULAIR [Concomitant]
     Active Substance: MONTELUKAST SODIUM

REACTIONS (18)
  - Wheezing [Recovering/Resolving]
  - Migraine [Not Recovered/Not Resolved]
  - Intervertebral disc protrusion [Unknown]
  - Accident at work [Recovered/Resolved]
  - Joint swelling [Not Recovered/Not Resolved]
  - Fluid retention [Not Recovered/Not Resolved]
  - Back injury [Unknown]
  - Hypoaesthesia [Not Recovered/Not Resolved]
  - Disability [Not Recovered/Not Resolved]
  - Oral infection [Unknown]
  - Drug ineffective [Unknown]
  - Pulmonary congestion [Not Recovered/Not Resolved]
  - Dyspnoea [Recovering/Resolving]
  - Ataxia [Not Recovered/Not Resolved]
  - Asthma [Not Recovered/Not Resolved]
  - Visual impairment [Not Recovered/Not Resolved]
  - Pain [Recovered/Resolved]
  - Ill-defined disorder [Not Recovered/Not Resolved]

NARRATIVE: CASE EVENT DATE: 200810
